FAERS Safety Report 4413370-5 (Version None)
Quarter: 2004Q3

REPORT INFORMATION
  Report Type: 
  Country: None (occurrence: None)
  Receive Date: 20040728
  Receipt Date: 20040720
  Transmission Date: 20050211
  Serious: Yes (Hospitalization)
  Sender: FDA-Public Use
  Company Number: US-JNJFOC-20040505536

PATIENT
  Age: 59 Year
  Sex: Female
  Weight: 54.4316 kg

DRUGS (12)
  1. LEVAQUIN [Suspect]
     Indication: BRONCHOPNEUMONIA
     Dosage: 500 MG, 1 IN 1 DAY, ORAL
     Route: 048
     Dates: start: 20040325, end: 20040403
  2. LEVAQUIN [Suspect]
     Indication: BRONCHOPNEUMONIA
     Dosage: 500 MG, 1 IN 1 DAY, ORAL
     Route: 048
     Dates: start: 20040429, end: 20040430
  3. DIOVAN [Concomitant]
  4. SINGULAIR [Concomitant]
  5. RHINACORT          (BUDESONIDE) INHALATION [Concomitant]
  6. ACIPHEX [Concomitant]
  7. .... [Concomitant]
  8. CLARINEX [Concomitant]
  9. MIACALCIN NS (CALCITONIN, SALMON) [Concomitant]
  10. C0-ENZYME Q10 (UBIDECARENONE) [Concomitant]
  11. OMEGA 3 FATTY ACIDS (FISH OIL) [Concomitant]
  12. HYDROCHLOROTHIAZIDE [Concomitant]

REACTIONS (17)
  - ANAPHYLACTIC REACTION [None]
  - ANXIETY [None]
  - ARTHRALGIA [None]
  - BRONCHIECTASIS [None]
  - DERMATITIS EXFOLIATIVE [None]
  - DRY SKIN [None]
  - DYSPHAGIA [None]
  - HYPERTENSION [None]
  - INFLUENZA LIKE ILLNESS [None]
  - NASOPHARYNGITIS [None]
  - NERVOUSNESS [None]
  - PAIN IN EXTREMITY [None]
  - PARAESTHESIA [None]
  - PNEUMONIA [None]
  - PULMONARY FIBROSIS [None]
  - SCLERODERMA [None]
  - SYSTEMIC LUPUS ERYTHEMATOSUS [None]
